FAERS Safety Report 14261558 (Version 1)
Quarter: 2017Q4

REPORT INFORMATION
  Report Type: Spontaneous
  Country: US (occurrence: US)
  Receive Date: 20171208
  Receipt Date: 20171208
  Transmission Date: 20180321
  Serious: No
  Sender: FDA-Public Use
  Company Number: US-TEVA-2017-US-827123

PATIENT
  Age: 67 Year
  Sex: Female
  Weight: 70.29 kg

DRUGS (6)
  1. MUCUS ER [Suspect]
     Active Substance: GUAIFENESIN
     Indication: RESPIRATORY TRACT CONGESTION
     Route: 048
     Dates: start: 20171107, end: 20171111
  2. HORMONE ANTAGONISTS AND RELATED AGENTS [Concomitant]
     Active Substance: UNSPECIFIED INGREDIENT
  3. VITAMIN C [Concomitant]
     Active Substance: ASCORBIC ACID
     Dates: start: 2015
  4. TURMERIC [Concomitant]
     Active Substance: HERBALS\TURMERIC
  5. TRAZODONE [Concomitant]
     Active Substance: TRAZODONE HYDROCHLORIDE
  6. ATENOLOL. [Concomitant]
     Active Substance: ATENOLOL

REACTIONS (2)
  - Pruritus generalised [Not Recovered/Not Resolved]
  - Hypersensitivity [Not Recovered/Not Resolved]

NARRATIVE: CASE EVENT DATE: 20171110
